FAERS Safety Report 6254889-4 (Version None)
Quarter: 2009Q3

REPORT INFORMATION
  Report Type: 
  Country: None (occurrence: None)
  Receive Date: 20090702
  Receipt Date: 20090623
  Transmission Date: 20100115
  Serious: Yes (Death, Other)
  Sender: FDA-Public Use
  Company Number: US-BRISTOL-MYERS SQUIBB COMPANY-14572275

PATIENT
  Age: 77 Year
  Sex: Female
  Weight: 57 kg

DRUGS (16)
  1. APIXABAN [Suspect]
     Indication: THROMBOSIS PROPHYLAXIS
     Route: 048
     Dates: start: 20090126, end: 20090331
  2. WARFARIN SODIUM [Suspect]
     Indication: THROMBOSIS PROPHYLAXIS
     Route: 048
     Dates: start: 20090126, end: 20090331
  3. PLACEBO [Suspect]
     Indication: THROMBOSIS PROPHYLAXIS
     Route: 048
     Dates: start: 20090126, end: 20090331
  4. COREG [Concomitant]
     Indication: HYPERTENSION
     Dates: start: 20040724, end: 20090123
  5. COREG [Concomitant]
     Indication: HEART RATE
     Dates: start: 20040724, end: 20090123
  6. BYSTOLIC [Concomitant]
     Dosage: 5 MG MORNING; 2.5 MG EVENING.
     Dates: start: 20090123, end: 20090401
  7. LIPITOR [Concomitant]
     Indication: DYSLIPIDAEMIA
     Dates: start: 20080521
  8. BENICAR HCT [Concomitant]
     Dosage: 1DF= 20/12.5MG
  9. MULTI-VITAMIN [Concomitant]
  10. HYDROXYCHLOROQUINE SULFATE [Concomitant]
     Indication: SJOGREN'S SYNDROME
     Dates: start: 20040730
  11. HYDROXYCHLOROQUINE SULFATE [Concomitant]
     Indication: SYSTEMIC LUPUS ERYTHEMATOSUS
     Dates: start: 20040730
  12. OXYBUTYNIN CHLORIDE [Concomitant]
  13. BACTRIM [Concomitant]
     Dates: start: 20090127
  14. FOSAMAX [Concomitant]
     Dates: start: 20050223
  15. LANOXIN [Concomitant]
     Dates: start: 20090114
  16. METOPROLOL SUCCINATE [Concomitant]
     Dates: start: 20090331

REACTIONS (5)
  - CARDIAC FAILURE CONGESTIVE [None]
  - CARDIOMYOPATHY [None]
  - LIVER FUNCTION TEST ABNORMAL [None]
  - MYOCARDITIS [None]
  - SEPSIS [None]
